FAERS Safety Report 7218909-2 (Version None)
Quarter: 2011Q1

REPORT INFORMATION
  Report Type: 
  Country: None (occurrence: None)
  Receive Date: 20110110
  Receipt Date: 20110106
  Transmission Date: 20110831
  Serious: Yes (Hospitalization, Other)
  Sender: FDA-Public Use
  Company Number: FR-BRISTOL-MYERS SQUIBB COMPANY-15475908

PATIENT
  Age: 79 Year
  Sex: Female

DRUGS (5)
  1. TAHOR [Suspect]
     Route: 048
     Dates: end: 20101118
  2. IRBESARTAN [Suspect]
     Route: 048
     Dates: end: 20101118
  3. TEMERIT [Concomitant]
     Route: 048
  4. ESIDRIX [Suspect]
     Route: 048
     Dates: end: 20101118
  5. PREVISCAN [Suspect]
     Dosage: 1 DF:3/4TABLET
     Route: 048
     Dates: end: 20101118

REACTIONS (3)
  - EMBOLIC STROKE [None]
  - CHOLESTASIS [None]
  - TUBULOINTERSTITIAL NEPHRITIS [None]
